FAERS Safety Report 22621078 (Version 1)
Quarter: 2023Q2

REPORT INFORMATION
  Report Type: Spontaneous
  Country: US (occurrence: US)
  Receive Date: 20230620
  Receipt Date: 20230620
  Transmission Date: 20230721
  Serious: No
  Sender: FDA-Public Use
  Company Number: US-PFIZER INC-202200307707

PATIENT
  Age: 38 Year
  Sex: Female

DRUGS (3)
  1. XELJANZ [Suspect]
     Active Substance: TOFACITINIB CITRATE
     Indication: Alopecia areata
     Dosage: 5 MG, 2X/DAY
     Dates: start: 20210613, end: 20230520
  2. XELJANZ [Suspect]
     Active Substance: TOFACITINIB CITRATE
     Dosage: 5 MG, 3X/DAY
     Dates: start: 20220101
  3. CYCLOSPORINE [Suspect]
     Active Substance: CYCLOSPORINE
     Dosage: 3 DF, DAILY (2 CAPS IN MORNING AND 1 CAP IN EVENING)

REACTIONS (6)
  - Weight increased [Unknown]
  - Nausea [Unknown]
  - Somnolence [Unknown]
  - Somnolence [Unknown]
  - Mood altered [Unknown]
  - Off label use [Unknown]

NARRATIVE: CASE EVENT DATE: 20210613
